FAERS Safety Report 16555496 (Version 1)
Quarter: 2019Q3

REPORT INFORMATION
  Report Type: Spontaneous
  Country: AU (occurrence: AU)
  Receive Date: 20190710
  Receipt Date: 20190710
  Transmission Date: 20191004
  Serious: Yes (Hospitalization, Other)
  Sender: FDA-Public Use
  Company Number: PHHY2019AU152407

PATIENT
  Age: 22 Year
  Sex: Male

DRUGS (1)
  1. CIPROFLOXACIN. [Suspect]
     Active Substance: CIPROFLOXACIN
     Indication: GASTROENTERITIS SALMONELLA
     Dosage: UNK
     Route: 042

REACTIONS (4)
  - Diarrhoea haemorrhagic [Unknown]
  - Gastrointestinal disorder [Unknown]
  - Megacolon [Unknown]
  - Condition aggravated [Unknown]
